FAERS Safety Report 10411511 (Version 1)
Quarter: 2014Q3

REPORT INFORMATION
  Report Type: Spontaneous
  Country: US (occurrence: US)
  Receive Date: 20140827
  Receipt Date: 20140827
  Transmission Date: 20150326
  Serious: No
  Sender: FDA-Public Use
  Company Number: US-BIOGENIDEC-2014BI086230

PATIENT
  Sex: Female

DRUGS (1)
  1. AVONEX [Suspect]
     Active Substance: INTERFERON BETA-1A
     Indication: MULTIPLE SCLEROSIS
     Route: 030
     Dates: start: 20060331, end: 20060814

REACTIONS (5)
  - Asthma [Not Recovered/Not Resolved]
  - Rash [Not Recovered/Not Resolved]
  - Dyspepsia [Not Recovered/Not Resolved]
  - Multiple allergies [Not Recovered/Not Resolved]
  - Pruritus [Not Recovered/Not Resolved]
